FAERS Safety Report 4684642-4 (Version None)
Quarter: 2005Q2

REPORT INFORMATION
  Report Type: 
  Country: None (occurrence: None)
  Receive Date: 20050531
  Receipt Date: 20050209
  Transmission Date: 20051028
  Serious: Yes (Hospitalization)
  Sender: FDA-Public Use
  Company Number: US_0502112896

PATIENT
  Sex: Female

DRUGS (7)
  1. ZYPREXA [Suspect]
  2. AMITRIPTYLINE [Concomitant]
  3. FLUVOXAMINE MALEATE [Concomitant]
  4. PHENAZOPYRIDINE [Concomitant]
  5. PYRIDIUM (PHENAZOPYRIDINE HYDROCHLORIDE) [Concomitant]
  6. ALCOHOL [Concomitant]
  7. WELLBUTRIN [Concomitant]

REACTIONS (1)
  - SUICIDE ATTEMPT [None]
